FAERS Safety Report 8929153 (Version 1)
Quarter: 2012Q4

REPORT INFORMATION
  Report Type: 
  Country: IT (occurrence: IT)
  Receive Date: 20121127
  Receipt Date: 20121127
  Transmission Date: 20130627
  Serious: Yes (Hospitalization)
  Sender: FDA-Public Use
  Company Number: PHHY2012IT108192

PATIENT
  Age: 47 Year
  Sex: Female

DRUGS (2)
  1. RAMIPRIL [Suspect]
     Indication: HYPERTENSION
     Dosage: 2.5 mg, daily
     Route: 048
     Dates: start: 20121008, end: 20121010
  2. AMOXICILLIN\CLAVULANIC ACID [Suspect]
     Indication: COUGH
     Dosage: 1 DF, total
     Route: 048
     Dates: start: 20121010, end: 20121010

REACTIONS (4)
  - Hyperhidrosis [Recovering/Resolving]
  - Malaise [Recovering/Resolving]
  - Paraesthesia [Recovering/Resolving]
  - Nausea [Recovering/Resolving]
